FAERS Safety Report 17184287 (Version 1)
Quarter: 2019Q4

REPORT INFORMATION
  Report Type: Spontaneous
  Country: US (occurrence: US)
  Receive Date: 20191219
  Receipt Date: 20191219
  Transmission Date: 20200122
  Serious: Yes (Hospitalization)
  Sender: FDA-Public Use
  Company Number: None

PATIENT
  Age: 39 Year
  Sex: Male
  Weight: 86.85 kg

DRUGS (1)
  1. DEPO-TESTOSTERONE [Suspect]
     Active Substance: TESTOSTERONE CYPIONATE
     Indication: HYPOGONADISM
     Dosage: ?          OTHER FREQUENCY:14DAYS;?
     Route: 030

REACTIONS (1)
  - Hypersensitivity [None]

NARRATIVE: CASE EVENT DATE: 20191215
